FAERS Safety Report 14990456 (Version 3)
Quarter: 2018Q2

REPORT INFORMATION
  Report Type: Spontaneous
  Country: DE (occurrence: DE)
  Receive Date: 20180608
  Receipt Date: 20180613
  Transmission Date: 20180711
  Serious: Yes (Other)
  Sender: FDA-Public Use
  Company Number: DE-COLLEGIUM PHARMACEUTICAL, INC.-DE-2018DEP001190

PATIENT
  Sex: Female

DRUGS (3)
  1. TAPENTADOL HYDROCHLORIDE [Suspect]
     Active Substance: TAPENTADOL HYDROCHLORIDE
     Indication: RADICULOPATHY
     Dosage: 300 MG, UNK
     Route: 065
  2. TILIDINE [Suspect]
     Active Substance: TILIDINE
     Indication: RADICULOPATHY
     Dosage: 300 MG, UNK
  3. DULOXETINE. [Concomitant]
     Active Substance: DULOXETINE
     Indication: RADICULOPATHY
     Dosage: UNK

REACTIONS (1)
  - Cognitive disorder [Unknown]
